FAERS Safety Report 22273070 (Version 1)
Quarter: 2023Q2

REPORT INFORMATION
  Report Type: Spontaneous
  Country: US (occurrence: US)
  Receive Date: 20230502
  Receipt Date: 20230502
  Transmission Date: 20230721
  Serious: Yes (Hospitalization)
  Sender: FDA-Public Use
  Company Number: US-MYLANLABS-2023M1044123

PATIENT
  Age: 21 Year
  Sex: Male

DRUGS (12)
  1. BUPROPION [Interacting]
     Active Substance: BUPROPION
     Indication: Major depression
     Dosage: 150 MILLIGRAM, QD, FORMULATION: EXTENDED RELEASE
     Route: 065
  2. BUPROPION [Interacting]
     Active Substance: BUPROPION
     Indication: Attention deficit hyperactivity disorder
     Dosage: 300 MILLIGRAM, QD, FORMULATION: EXTENDED RELEASE
     Route: 065
  3. BUPROPION [Interacting]
     Active Substance: BUPROPION
     Dosage: 300 MILLIGRAM, QD
     Route: 065
  4. QUETIAPINE [Suspect]
     Active Substance: QUETIAPINE
     Indication: Insomnia
     Dosage: 100 MILLIGRAM, AT NIGHT
     Route: 065
  5. QUETIAPINE [Suspect]
     Active Substance: QUETIAPINE
     Dosage: 400 MILLIGRAM, AT NIGHT
     Route: 065
  6. QUETIAPINE [Suspect]
     Active Substance: QUETIAPINE
     Dosage: 200 MILLIGRAM, AT NIGHT
     Route: 065
  7. ATOMOXETINE [Interacting]
     Active Substance: ATOMOXETINE
     Indication: Major depression
     Dosage: 40 MILLIGRAM, QD
     Route: 065
  8. ATOMOXETINE [Interacting]
     Active Substance: ATOMOXETINE
     Indication: Attention deficit hyperactivity disorder
     Dosage: 60 MILLIGRAM, QD
     Route: 065
  9. ALPRAZOLAM [Concomitant]
     Active Substance: ALPRAZOLAM
     Indication: Anxiety disorder
     Dosage: 0.25 MILLIGRAM, PRN
     Route: 065
  10. LORAZEPAM [Concomitant]
     Active Substance: LORAZEPAM
     Indication: Agitation
     Dosage: 1 MILLIGRAM, Q8H
     Route: 065
  11. LORAZEPAM [Concomitant]
     Active Substance: LORAZEPAM
     Dosage: 0.5 MILLIGRAM, QD
     Route: 065
  12. DIVALPROEX SODIUM [Concomitant]
     Active Substance: DIVALPROEX SODIUM
     Indication: Seizure
     Dosage: 1500 MILLIGRAM, QD
     Route: 065

REACTIONS (6)
  - Seizure [Unknown]
  - Psychotic disorder [Unknown]
  - Manic symptom [Unknown]
  - Drug interaction [Unknown]
  - Off label use [Unknown]
  - Tongue biting [Unknown]
